FAERS Safety Report 5318949-4 (Version None)
Quarter: 2007Q2

REPORT INFORMATION
  Report Type: 
  Country: None (occurrence: None)
  Receive Date: 20070508
  Receipt Date: 20070502
  Transmission Date: 20071010
  Serious: Yes (Death, Other)
  Sender: FDA-Public Use
  Company Number: US-ELI_LILLY_AND_COMPANY-US200703002417

PATIENT
  Age: 69 Year
  Sex: Female
  Weight: 65 kg

DRUGS (15)
  1. ALIMTA [Suspect]
     Indication: NON-SMALL CELL LUNG CANCER
     Dosage: 500 MG/M2, UNK
     Route: 042
     Dates: start: 20061031, end: 20070109
  2. CARBOPLATIN [Concomitant]
  3. AVASTIN [Concomitant]
  4. VITAMIN B-12 [Concomitant]
     Indication: VITAMIN SUPPLEMENTATION
  5. FOLIC ACID [Concomitant]
     Indication: VITAMIN SUPPLEMENTATION
     Dosage: 1 MG, DAILY (1/D)
     Route: 048
  6. WELLBUTRIN [Concomitant]
     Dosage: 75 MG, DAILY (1/D)
     Route: 048
  7. NORVASC [Concomitant]
     Dosage: 5 MG, DAILY (1/D)
     Route: 048
  8. LIPITOR [Concomitant]
     Dosage: 10 MG, DAILY (1/D)
     Route: 048
  9. OXYCODONE HCL [Concomitant]
     Dosage: 10 MG, AS NEEDED
     Route: 048
  10. LOVENOX [Concomitant]
     Dosage: 100 MG, DAILY (1/D)
     Route: 058
  11. ATIVAN [Concomitant]
     Dosage: 0.5 MG, AS NEEDED
     Route: 048
  12. COLACE [Concomitant]
     Dosage: UNK, DAILY (1/D)
  13. SENNA [Concomitant]
     Dosage: UNK, DAILY (1/D)
  14. FENTANYL [Concomitant]
     Dosage: 50 UG, OTHER
     Route: 062
  15. PREVACID [Concomitant]
     Dosage: 30 MG, DAILY (1/D)
     Route: 048

REACTIONS (2)
  - LARGE INTESTINE PERFORATION [None]
  - SEPTIC SHOCK [None]
